FAERS Safety Report 8773088 (Version 1)
Quarter: 2012Q4

REPORT INFORMATION
  Report Type: 
  Country: US (occurrence: US)
  Receive Date: 20120907
  Receipt Date: 20120907
  Transmission Date: 20130627
  Serious: Yes (Hospitalization, Other)
  Sender: FDA-Public Use
  Company Number: US-ASTELLAS-2012US007488

PATIENT
  Age: 46 Year
  Sex: Male

DRUGS (1)
  1. PROGRAF [Suspect]
     Indication: RENAL TRANSPLANT
     Dosage: 7 mg, UID/QD
     Route: 048
     Dates: start: 20120303

REACTIONS (2)
  - Local swelling [Not Recovered/Not Resolved]
  - Arteriovenous fistula site complication [Unknown]
